FAERS Safety Report 6852564-6 (Version None)
Quarter: 2010Q3

REPORT INFORMATION
  Report Type: 
  Country: None (occurrence: None)
  Receive Date: 20100717
  Receipt Date: 20071127
  Transmission Date: 20110219
  Serious: No
  Sender: FDA-Public Use
  Company Number: US-PFIZER INC-2007099305

PATIENT
  Sex: Female
  Weight: 68.2 kg

DRUGS (5)
  1. CHANTIX [Suspect]
     Indication: SMOKING CESSATION THERAPY
     Dates: start: 20060101
  2. PAXIL [Concomitant]
     Indication: CARDIAC DISORDER
  3. TOPROL-XL [Concomitant]
     Indication: CARDIAC DISORDER
  4. SYNTHROID [Concomitant]
     Indication: THYROID DISORDER
  5. LIPITOR [Concomitant]
     Indication: BLOOD CHOLESTEROL

REACTIONS (1)
  - NAUSEA [None]
